FAERS Safety Report 21458591 (Version 1)
Quarter: 2022Q4

REPORT INFORMATION
  Report Type: Spontaneous
  Country: US (occurrence: None)
  Receive Date: 20221014
  Receipt Date: 20221014
  Transmission Date: 20230113
  Serious: Yes (Death)
  Sender: FDA-Public Use
  Company Number: 2022A344826

PATIENT

DRUGS (1)
  1. SAPHNELO [Suspect]
     Active Substance: ANIFROLUMAB-FNIA
     Indication: Lupus-like syndrome
     Dosage: 300.0MG AS REQUIRED
     Route: 042

REACTIONS (1)
  - Death [Fatal]
